FAERS Safety Report 13143419 (Version 1)
Quarter: 2017Q1

REPORT INFORMATION
  Report Type: Spontaneous
  Country: CN (occurrence: CN)
  Receive Date: 20170124
  Receipt Date: 20170124
  Transmission Date: 20170428
  Serious: Yes (Disabling)
  Sender: FDA-Public Use
  Company Number: PHHY2017CN008792

PATIENT
  Age: 76 Year
  Sex: Male

DRUGS (3)
  1. FLUVASTATIN [Suspect]
     Active Substance: FLUVASTATIN SODIUM
     Indication: LIPIDS ABNORMAL
     Dosage: 80 MG, QD
     Route: 048
     Dates: start: 20160501, end: 20160921
  2. FLUVASTATIN [Suspect]
     Active Substance: FLUVASTATIN SODIUM
     Indication: ARTERIOSCLEROSIS
  3. NIFEDIPINE. [Concomitant]
     Active Substance: NIFEDIPINE
     Indication: BLOOD PRESSURE ABNORMAL
     Dosage: UNK
     Route: 065

REACTIONS (2)
  - Musculoskeletal disorder [Recovering/Resolving]
  - Hepatic lesion [Recovering/Resolving]

NARRATIVE: CASE EVENT DATE: 20160929
